FAERS Safety Report 21479535 (Version 1)
Quarter: 2022Q4

REPORT INFORMATION
  Report Type: Spontaneous
  Country: US (occurrence: None)
  Receive Date: 20221018
  Receipt Date: 20221018
  Transmission Date: 20230113
  Serious: Yes (Other)
  Sender: FDA-Public Use
  Company Number: None

PATIENT
  Sex: Male

DRUGS (2)
  1. HUMIRA [Suspect]
     Active Substance: ADALIMUMAB
     Indication: Sarcoidosis
     Dosage: 40 MG/0.4ML SUBCUTANEOUS? ? INJECT 1 PEN (40 MG) UNDER THE SKIN (SUBCUTANEOUS INJECTION) EVERY TWO W
     Route: 058
     Dates: start: 20200916
  2. HUMIRA [Suspect]
     Active Substance: ADALIMUMAB
     Dosage: OTHER QUANTITY : 1 PEN (40 MG);?FREQUENCY : EVERY OTHER WEEK;?
     Route: 058

REACTIONS (1)
  - Surgery [None]
